FAERS Safety Report 4881330-6 (Version None)
Quarter: 2005Q4

REPORT INFORMATION
  Report Type: 
  Country: None (occurrence: None)
  Receive Date: 20051212
  Receipt Date: 20050928
  Transmission Date: 20060501
  Serious: Yes (Life-Threatening, Other)
  Sender: FDA-Public Use
  Company Number: 2005-01847

PATIENT
  Age: 63 Year
  Sex: Female
  Weight: 59.9 kg

DRUGS (7)
  1. VELCADE [Suspect]
     Indication: MULTIPLE MYELOMA
     Dosage: 1.30 MG/M2, INTRAVENOUS
     Route: 042
     Dates: start: 20050613, end: 20050716
  2. VELCADE [Suspect]
     Dosage: 1.00 MG/M2, INTRAVENOUS
     Route: 042
     Dates: start: 20050726, end: 20050802
  3. PAXIL [Concomitant]
  4. RESTORIL [Concomitant]
  5. DARVOCET-N (PARACETAMOL, DEXTROPROPOXYPHENE NAPSILATE) [Concomitant]
  6. DILAUDID [Concomitant]
  7. BENEFIBER [Concomitant]

REACTIONS (11)
  - ABDOMINAL PAIN [None]
  - BACK PAIN [None]
  - CONSTIPATION [None]
  - ECCHYMOSIS [None]
  - FATIGUE [None]
  - NEUROPATHY [None]
  - PARAESTHESIA [None]
  - POST HERPETIC NEURALGIA [None]
  - PYREXIA [None]
  - RECTAL HAEMORRHAGE [None]
  - THROMBOCYTOPENIA [None]
